FAERS Safety Report 8623005-3 (Version None)
Quarter: 2012Q3

REPORT INFORMATION
  Report Type: 
  Country: None (occurrence: None)
  Receive Date: 20120827
  Receipt Date: 20120823
  Transmission Date: 20120928
  Serious: Yes (Death)
  Sender: FDA-Public Use
  Company Number: PHHY2012KR073025

PATIENT

DRUGS (6)
  1. CYCLOSPORINE [Suspect]
     Indication: PROPHYLAXIS
  2. CYCLOSPORINE [Suspect]
  3. CYCLOSPORINE [Suspect]
     Indication: STEM CELL TRANSPLANT
     Dosage: 1.5 MG/KG, EVERY 12 HOURS
     Route: 042
  4. METHOTREXATE [Suspect]
     Dosage: 10 MG/M2, ON DAY 3, 6 AND 11 AFTER TRANSPLANT
     Route: 042
  5. CYCLOSPORINE [Suspect]
     Route: 048
  6. METHOTREXATE [Suspect]
     Indication: PROPHYLAXIS AGAINST GRAFT VERSUS HOST DISEASE
     Dosage: 15 MG/M2, 1 DAY
     Route: 042

REACTIONS (1)
  - ACUTE GRAFT VERSUS HOST DISEASE [None]
